FAERS Safety Report 5799536-0 (Version None)
Quarter: 2008Q3

REPORT INFORMATION
  Report Type: 
  Country: None (occurrence: None)
  Receive Date: 20080703
  Receipt Date: 20080630
  Transmission Date: 20090109
  Serious: Yes (Hospitalization, Other)
  Sender: FDA-Public Use
  Company Number: US-RANBAXY-2008US-16154

PATIENT

DRUGS (3)
  1. CLINDAMYCIN HYDROCHLORIDE [Suspect]
     Indication: TOOTH ABSCESS
     Dosage: 300 MG, TID
     Route: 048
     Dates: start: 20080613, end: 20080620
  2. ANTIBIOTICS [Concomitant]
     Indication: DRUG USE FOR UNKNOWN INDICATION
  3. METRONIDAZOLE HCL [Concomitant]
     Indication: DRUG USE FOR UNKNOWN INDICATION

REACTIONS (6)
  - DIARRHOEA [None]
  - EYELID PTOSIS [None]
  - HYPOAESTHESIA [None]
  - HYPOTENSION [None]
  - LOSS OF CONSCIOUSNESS [None]
  - MOVEMENT DISORDER [None]
